FAERS Safety Report 10344443 (Version 1)
Quarter: 2014Q3

REPORT INFORMATION
  Report Type: Spontaneous
  Country: US (occurrence: None)
  Receive Date: 20140724
  Receipt Date: 20140724
  Transmission Date: 20150326
  Serious: Yes (Disabling)
  Sender: FDA-Public Use
  Company Number: None

PATIENT
  Age: 58 Year
  Sex: Female
  Weight: 59.88 kg

DRUGS (1)
  1. FLUTICASONE PROPIONATE. [Suspect]
     Active Substance: FLUTICASONE PROPIONATE
     Indication: NASAL CONGESTION
     Route: 045
     Dates: start: 20131215, end: 20140530

REACTIONS (12)
  - Rhinorrhoea [None]
  - Chills [None]
  - Migraine [None]
  - Product substitution issue [None]
  - Pyrexia [None]
  - Product contamination [None]
  - Infection [None]
  - Impaired work ability [None]
  - Paranasal sinus discomfort [None]
  - Dizziness [None]
  - Pain [None]
  - Product contamination microbial [None]

NARRATIVE: CASE EVENT DATE: 20140719
